FAERS Safety Report 23854247 (Version 3)
Quarter: 2024Q3

REPORT INFORMATION
  Report Type: Report from Study
  Country: CA (occurrence: CA)
  Receive Date: 20240514
  Receipt Date: 20240731
  Transmission Date: 20241016
  Serious: Yes (Death, Other)
  Sender: GENMAB
  Company Number: CA-ABBVIE-5757919

PATIENT
  Age: 74 Year
  Sex: Male

DRUGS (2)
  1. EPCORITAMAB [Suspect]
     Active Substance: EPCORITAMAB
     Indication: Primary mediastinal large B-cell lymphoma
     Dosage: 0.8 MG, EVERY 7 DAYS
     Route: 058
     Dates: start: 20240408
  2. EPCORITAMAB [Suspect]
     Active Substance: EPCORITAMAB
     Indication: Richter^s syndrome
     Dosage: UNK
     Route: 058

REACTIONS (4)
  - Cytokine release syndrome [Fatal]
  - Immune effector cell-associated neurotoxicity syndrome [Fatal]
  - Diffuse large B-cell lymphoma stage IV [Unknown]
  - Off label use [Unknown]

NARRATIVE: CASE EVENT DATE: 20240101
